FAERS Safety Report 21301537 (Version 2)
Quarter: 2022Q3

REPORT INFORMATION
  Report Type: Report from Study
  Country: DE (occurrence: DE)
  Receive Date: 20220907
  Receipt Date: 20220909
  Transmission Date: 20221027
  Serious: No
  Sender: FDA-Public Use
  Company Number: DE-UCBSA-2022051953

PATIENT
  Age: 27 Year
  Sex: Female
  Weight: 95 kg

DRUGS (11)
  1. BIMEKIZUMAB [Suspect]
     Active Substance: BIMEKIZUMAB
     Indication: Hidradenitis
     Dosage: UNK
     Route: 058
     Dates: start: 20211027, end: 20220803
  2. BIMEKIZUMAB [Suspect]
     Active Substance: BIMEKIZUMAB
     Indication: Hidradenitis
     Dosage: UNK
     Route: 058
     Dates: start: 20211027, end: 20220803
  3. PLACEBO [Suspect]
     Active Substance: UNSPECIFIED INGREDIENT
     Indication: Hidradenitis
     Dosage: UNK
     Route: 058
     Dates: start: 20211027, end: 20220803
  4. SYMBICORT [Concomitant]
     Active Substance: BUDESONIDE\FORMOTEROL FUMARATE DIHYDRATE
     Indication: Asthma
     Dosage: 1 APP EVERY MORNING
     Dates: start: 2003
  5. ALBUTEROL [Concomitant]
     Active Substance: ALBUTEROL
     Indication: Asthma
     Dosage: 1 APP AS NEEDED
     Dates: start: 2003
  6. DESLORATADINE [Concomitant]
     Active Substance: DESLORATADINE
     Indication: Conjunctivitis allergic
     Dosage: 5 MG AS NEEDED
     Dates: start: 2003
  7. PREGABALIN [Concomitant]
     Active Substance: PREGABALIN
     Indication: Trigeminal neuralgia
     Dosage: 150 MG TWICE PER DAY
     Dates: start: 2019
  8. MONTELUKAST SODIUM [Concomitant]
     Active Substance: MONTELUKAST SODIUM
     Indication: Product used for unknown indication
     Dosage: 10 MG ONCE PER DAY
     Dates: start: 20210615
  9. MOMETASONE FUROATE [Concomitant]
     Active Substance: MOMETASONE FUROATE
     Indication: Dyshidrotic eczema
     Dosage: 1 APP TWICE PER WEEK
     Dates: start: 20220126
  10. CITALOPRAM [Concomitant]
     Active Substance: CITALOPRAM HYDROBROMIDE
     Indication: Depression
     Dosage: 10 MG ONCE PER DAY
     Dates: start: 20220626
  11. ACETAMINOPHEN [Concomitant]
     Active Substance: ACETAMINOPHEN
     Indication: Trigeminal neuralgia
     Dosage: UNK
     Dates: start: 20211004

REACTIONS (1)
  - Oral candidiasis [Not Recovered/Not Resolved]

NARRATIVE: CASE EVENT DATE: 20220819
